FAERS Safety Report 8606055-2 (Version None)
Quarter: 2012Q3

REPORT INFORMATION
  Report Type: 
  Country: None (occurrence: None)
  Receive Date: 20120820
  Receipt Date: 19881011
  Transmission Date: 20120928
  Serious: Yes (Death, Hospitalization)
  Sender: FDA-Public Use
  Company Number: US-ROCHE-1100451

PATIENT
  Sex: Male

DRUGS (7)
  1. NITROGLYCERIN [Concomitant]
     Route: 060
  2. DOBUTAMINE [Concomitant]
  3. MORPHINE [Concomitant]
     Route: 042
  4. DOPAMINE HCL [Concomitant]
     Dosage: 25 MCG PER KILOGRAM PER MINUTE
     Route: 041
  5. LIDOCAINE [Concomitant]
     Route: 041
  6. ACTIVASE [Suspect]
     Indication: ACUTE MYOCARDIAL INFARCTION
  7. PROCARDIA [Concomitant]

REACTIONS (6)
  - VENTRICULAR TACHYCARDIA [None]
  - BRADYCARDIA [None]
  - DEATH [None]
  - TONIC CONVULSION [None]
  - VENTRICULAR FIBRILLATION [None]
  - PULSELESS ELECTRICAL ACTIVITY [None]
